FAERS Safety Report 20953668 (Version 1)
Quarter: 2022Q2

REPORT INFORMATION
  Report Type: Spontaneous
  Country: US (occurrence: US)
  Receive Date: 20220613
  Receipt Date: 20220613
  Transmission Date: 20220721
  Serious: Yes (Death, Hospitalization, Disabling, Other)
  Sender: FDA-Public Use
  Company Number: US-009507513-2206USA001614

PATIENT
  Age: 59 Year
  Sex: Female

DRUGS (9)
  1. PRINIVIL [Suspect]
     Active Substance: LISINOPRIL
     Indication: Hypertension
     Dosage: 5 MILLIGRAM
     Route: 065
     Dates: start: 20180116
  2. KEYTRUDA [Suspect]
     Active Substance: PEMBROLIZUMAB
     Indication: Small cell lung cancer
     Dosage: UNK
     Route: 065
     Dates: start: 20171212
  3. CETIRIZINE [Concomitant]
     Active Substance: CETIRIZINE HYDROCHLORIDE
     Indication: Product used for unknown indication
     Dosage: 10 MILLIGRAM
     Route: 065
     Dates: start: 2012
  4. FLUTICASONE [Concomitant]
     Active Substance: FLUTICASONE
     Indication: Product used for unknown indication
     Dosage: UNK
     Route: 065
     Dates: start: 2017
  5. ONDANSETRON HYDROCHLORIDE [Concomitant]
     Active Substance: ONDANSETRON HYDROCHLORIDE
     Indication: Product used for unknown indication
     Dosage: 24 MILLIGRAM
     Route: 065
     Dates: start: 20170605
  6. LIDOCAINE\PRILOCAINE [Concomitant]
     Active Substance: LIDOCAINE\PRILOCAINE
     Indication: Product used for unknown indication
     Dosage: 2.5 PERCENT
     Route: 065
     Dates: start: 20170718
  7. LORAZEPAM [Concomitant]
     Active Substance: LORAZEPAM
     Indication: Product used for unknown indication
     Dosage: 0.75 MILLIGRAM
     Route: 065
     Dates: start: 20170912
  8. MIRTAZAPINE [Concomitant]
     Active Substance: MIRTAZAPINE
     Indication: Product used for unknown indication
     Dosage: 30 MILLIGRAM
     Route: 065
     Dates: start: 20170912
  9. ACETAMINOPHEN [Concomitant]
     Active Substance: ACETAMINOPHEN
     Indication: Product used for unknown indication
     Dosage: 700 MILLIGRAM
     Route: 065
     Dates: start: 20171010

REACTIONS (28)
  - Confusional state [Recovering/Resolving]
  - Death [Fatal]
  - Malignant neoplasm progression [Unknown]
  - Immune-mediated encephalitis [Unknown]
  - Metastases to meninges [Unknown]
  - Unresponsive to stimuli [Unknown]
  - Asthenia [Recovered/Resolved]
  - Fall [Recovered/Resolved]
  - Dizziness [Recovered/Resolved]
  - Urinary tract infection [Unknown]
  - Dehydration [Recovered/Resolved]
  - Weight decreased [Unknown]
  - Gait disturbance [Unknown]
  - Urinary incontinence [Unknown]
  - Hypovolaemia [Unknown]
  - Hypotension [Unknown]
  - Radiation necrosis [Unknown]
  - Protein total increased [Unknown]
  - Red blood cell count increased [Unknown]
  - Amnesia [Unknown]
  - Ataxia [Unknown]
  - Micturition urgency [Unknown]
  - Loss of personal independence in daily activities [Unknown]
  - Loss of proprioception [Unknown]
  - Nocturia [Unknown]
  - Dizziness postural [Unknown]
  - Tremor [Unknown]
  - Hypotension [Unknown]

NARRATIVE: CASE EVENT DATE: 20170101
